FAERS Safety Report 7893980-3 (Version None)
Quarter: 2011Q4

REPORT INFORMATION
  Report Type: 
  Country: None (occurrence: None)
  Receive Date: 20111104
  Receipt Date: 20111101
  Transmission Date: 20120403
  Serious: Yes (Death, Life-Threatening, Hospitalization)
  Sender: FDA-Public Use
  Company Number: BE-PFIZER INC-2011255171

PATIENT
  Age: 58 Year
  Sex: Female
  Weight: 71.7 kg

DRUGS (9)
  1. FLUOROURACIL [Suspect]
     Indication: COLORECTAL CANCER METASTATIC
     Dosage: 400 MG/M2 BOLUS, ON DAY ONE EVERY 14 DAYS
     Route: 040
     Dates: start: 20110502, end: 20111005
  2. FLUOROURACIL [Suspect]
     Dosage: 2400 MG/M2, ON DAYS ONE AND TWO EVERY 14 DAYS
     Route: 041
     Dates: start: 20110502, end: 20111005
  3. ALIZAPRIDE [Concomitant]
     Indication: NAUSEA
     Dosage: UNK
  4. BLINDED THERAPY [Suspect]
     Indication: COLORECTAL CANCER METASTATIC
     Dosage: UNK
     Route: 042
     Dates: start: 20110502, end: 20111005
  5. PANTOPRAZOLE [Concomitant]
     Indication: PROPHYLAXIS
     Dosage: UNK
  6. IRINOTECAN HCL [Suspect]
     Indication: COLORECTAL CANCER METASTATIC
     Dosage: 180 MG/M2, ON DAY ONE EVERY 14 DAYS
     Route: 042
     Dates: start: 20110502, end: 20111005
  7. LEUCOVORIN CALCIUM [Suspect]
     Indication: COLORECTAL CANCER METASTATIC
     Dosage: 400 MG/M2, ON DAY ONE EVERY 14 DAYS
     Route: 042
     Dates: start: 20110502, end: 20111005
  8. STEOVIT D3 [Concomitant]
     Indication: SUPPLEMENTATION THERAPY
     Dosage: UNK
  9. CITALOPRAM [Concomitant]
     Indication: DEPRESSION
     Dosage: UNK

REACTIONS (2)
  - NEUTROPENIA [None]
  - KLEBSIELLA SEPSIS [None]
